FAERS Safety Report 19080864 (Version 3)
Quarter: 2021Q2

REPORT INFORMATION
  Report Type: Spontaneous
  Country: US (occurrence: US)
  Receive Date: 20210331
  Receipt Date: 20210622
  Transmission Date: 20210717
  Serious: Yes (Hospitalization)
  Sender: FDA-Public Use
  Company Number: US-TEVA-2021-US-1896688

PATIENT
  Age: 45 Year
  Sex: Female

DRUGS (5)
  1. ALYQ [Suspect]
     Active Substance: TADALAFIL
     Route: 065
  2. ALYQ [Suspect]
     Active Substance: TADALAFIL
     Dosage: 20 MILLIGRAM DAILY;
     Route: 065
  3. TREPROSTINIL TEVA [Suspect]
     Active Substance: TREPROSTINIL
     Dosage: 40 ML/24 HR
     Route: 042
     Dates: start: 20200811
  4. OPSUMIT [Suspect]
     Active Substance: MACITENTAN
     Route: 065
  5. TREPROSTINIL TEVA [Suspect]
     Active Substance: TREPROSTINIL
     Indication: PULMONARY ARTERIAL HYPERTENSION
     Dosage: 40NG/KG/MIN
     Route: 042
     Dates: start: 20190829

REACTIONS (6)
  - Product supply issue [Unknown]
  - Incorrect disposal of product [Unknown]
  - Dyspnoea [Unknown]
  - Swelling [Unknown]
  - Headache [Unknown]
  - Oedema [Unknown]

NARRATIVE: CASE EVENT DATE: 202101
